FAERS Safety Report 25233746 (Version 2)
Quarter: 2025Q2

REPORT INFORMATION
  Report Type: Spontaneous
  Country: US (occurrence: US)
  Receive Date: 20250424
  Receipt Date: 20250428
  Transmission Date: 20250716
  Serious: Yes (Death)
  Sender: AMGEN
  Company Number: US-AMGEN-USASP2025077505

PATIENT

DRUGS (1)
  1. REPATHA [Suspect]
     Active Substance: EVOLOCUMAB
     Indication: Product used for unknown indication
     Route: 065

REACTIONS (2)
  - Cardiovascular disorder [Fatal]
  - Death [Fatal]
